FAERS Safety Report 13780537 (Version 2)
Quarter: 2017Q3

REPORT INFORMATION
  Report Type: Spontaneous
  Country: US (occurrence: US)
  Receive Date: 20170724
  Receipt Date: 20170816
  Transmission Date: 20171127
  Serious: No
  Sender: FDA-Public Use
  Company Number: US-009507513-1707USA008657

PATIENT

DRUGS (2)
  1. VICTOZA [Suspect]
     Active Substance: LIRAGLUTIDE
     Dosage: UNK
  2. JANUVIA [Suspect]
     Active Substance: SITAGLIPTIN PHOSPHATE
     Dosage: UNK
     Route: 048

REACTIONS (8)
  - Blood glucose abnormal [Unknown]
  - Faeces discoloured [Unknown]
  - Muscle spasms [Unknown]
  - Hyperhidrosis [Unknown]
  - Abdominal pain [Unknown]
  - Diarrhoea [Unknown]
  - Steatorrhoea [Unknown]
  - Nausea [Unknown]
